FAERS Safety Report 6877154-0 (Version None)
Quarter: 2010Q3

REPORT INFORMATION
  Report Type: 
  Country: None (occurrence: None)
  Receive Date: 20100727
  Receipt Date: 20100719
  Transmission Date: 20110219
  Serious: Yes (Hospitalization)
  Sender: FDA-Public Use
  Company Number: US-ROCHE-717150

PATIENT
  Age: 64 Year
  Sex: Female
  Weight: 53.9 kg

DRUGS (6)
  1. CAPECITABINE [Suspect]
     Dosage: REPORTED AS: 150 MG AND 500 MG TABLETS.
     Route: 048
     Dates: start: 20100212, end: 20100709
  2. ERLOTINIB [Suspect]
     Route: 048
     Dates: start: 20100212, end: 20100709
  3. LISINOPRIL [Concomitant]
  4. ASPIRIN [Concomitant]
  5. PROTONIX [Concomitant]
  6. KLOR-CON [Concomitant]
     Dosage: 22 FEBUARY 2010.

REACTIONS (1)
  - SMALL INTESTINAL OBSTRUCTION [None]
